FAERS Safety Report 4633876-3 (Version None)
Quarter: 2005Q2

REPORT INFORMATION
  Report Type: 
  Country: None (occurrence: None)
  Receive Date: 20050412
  Receipt Date: 20050412
  Transmission Date: 20051028
  Serious: No
  Sender: FDA-Public Use
  Company Number: None

PATIENT
  Sex: Male
  Weight: 62 kg

DRUGS (1)
  1. GEMCITABINE [Suspect]
     Dosage: 1000 MG/M2 IV OVER 30 MIN Q WK X 7 CYCLE 1 (8 WKS); 1000 MG/M2 IV OVER 30 MIN Q WK X 3 CYCLE 2+: CYC
     Route: 042
     Dates: start: 20050316

REACTIONS (3)
  - DEEP VEIN THROMBOSIS [None]
  - LOBAR PNEUMONIA [None]
  - PULMONARY EMBOLISM [None]
